FAERS Safety Report 5264280-5 (Version None)
Quarter: 2007Q1

REPORT INFORMATION
  Report Type: 
  Country: None (occurrence: None)
  Receive Date: 20070309
  Receipt Date: 20070227
  Transmission Date: 20070707
  Serious: Yes (Other)
  Sender: FDA-Public Use
  Company Number: 237450

PATIENT
  Sex: Male

DRUGS (3)
  1. MABTHERA( RITUXIMAB ) CONC FOR SOLUTION FOR INFUSION [Suspect]
     Indication: B-CELL LYMPHOMA
  2. FLUDARABINE PHOSPHATE [Concomitant]
  3. CYCLOPHOSPHAMIDE [Concomitant]

REACTIONS (2)
  - HISTIOCYTOSIS HAEMATOPHAGIC [None]
  - PANCYTOPENIA [None]
